FAERS Safety Report 5274884-1 (Version None)
Quarter: 2007Q1

REPORT INFORMATION
  Report Type: 
  Country: None (occurrence: None)
  Receive Date: 20061208
  Receipt Date: 20060706
  Transmission Date: 20070707
  Serious: Yes (Life-Threatening)
  Sender: FDA-Public Use
  Company Number: 2006UW11327

PATIENT
  Age: 57 Year
  Sex: Male
  Weight: 80.2867 kg

DRUGS (5)
  1. CRESTOR [Suspect]
     Indication: HYPERLIPIDAEMIA
     Dosage: 10 MG QD PO
     Route: 048
     Dates: start: 20040301, end: 20060110
  2. CIALIS ^GLAXOSMITHKLINE^ [Concomitant]
  3. ALLEGRA [Concomitant]
  4. NASONEX [Concomitant]
  5. VALTREX [Concomitant]

REACTIONS (1)
  - RHABDOMYOLYSIS [None]
